FAERS Safety Report 5655031-0 (Version None)
Quarter: 2008Q1

REPORT INFORMATION
  Report Type: 
  Country: None (occurrence: None)
  Receive Date: 20080307
  Receipt Date: 20080108
  Transmission Date: 20080703
  Serious: No
  Sender: FDA-Public Use
  Company Number: A0690304A

PATIENT
  Age: 52 Year
  Sex: Male
  Weight: 87.3 kg

DRUGS (4)
  1. REQUIP [Suspect]
     Indication: RESTLESS LEGS SYNDROME
     Dosage: .5MG PER DAY
     Route: 048
     Dates: start: 20070201, end: 20070501
  2. SPIRONOLACTONE [Concomitant]
  3. NAPROXIN [Concomitant]
     Indication: BACK PAIN
  4. DAILY VITAMIN [Concomitant]

REACTIONS (5)
  - DIZZINESS [None]
  - DRUG INEFFECTIVE [None]
  - HEADACHE [None]
  - NAUSEA [None]
  - VERTIGO [None]
